FAERS Safety Report 5971469-6 (Version None)
Quarter: 2008Q4

REPORT INFORMATION
  Report Type: 
  Country: None (occurrence: None)
  Receive Date: 20081201
  Receipt Date: 20081119
  Transmission Date: 20090506
  Serious: Yes (Hospitalization)
  Sender: FDA-Public Use
  Company Number: JP-JNJFOC-20080505175

PATIENT
  Sex: Female

DRUGS (15)
  1. REMICADE [Suspect]
     Indication: RHEUMATOID ARTHRITIS
     Dosage: 3 INFUSIONS
     Route: 042
  2. RHEUMATREX [Suspect]
     Route: 048
  3. RHEUMATREX [Suspect]
     Indication: RHEUMATOID ARTHRITIS
     Route: 048
  4. MOVER [Concomitant]
     Route: 048
  5. MOVER [Concomitant]
     Indication: RHEUMATOID ARTHRITIS
     Route: 048
  6. LOXONIN [Concomitant]
     Route: 048
  7. LOXONIN [Concomitant]
     Indication: RHEUMATOID ARTHRITIS
     Route: 048
  8. SULFASALAZINE [Concomitant]
     Route: 048
  9. PREDONINE [Concomitant]
     Route: 048
  10. RIMATIL [Concomitant]
     Route: 048
  11. RIMATIL [Concomitant]
     Dosage: DOSE INCREASED BY 50 MG EVERY 3 MONTHS
     Route: 048
  12. LOKIFLAN [Concomitant]
     Route: 048
  13. ORCL [Concomitant]
     Route: 048
  14. ISONIAZID [Concomitant]
     Indication: ANTIBIOTIC PROPHYLAXIS
     Route: 048
  15. BUCILLAMINE [Concomitant]
     Route: 048

REACTIONS (3)
  - INAPPROPRIATE ANTIDIURETIC HORMONE SECRETION [None]
  - LEUKOPENIA [None]
  - PNEUMOCYSTIS JIROVECI PNEUMONIA [None]
